FAERS Safety Report 19507221 (Version 2)
Quarter: 2021Q3

REPORT INFORMATION
  Report Type: Spontaneous
  Country: US (occurrence: US)
  Receive Date: 20210708
  Receipt Date: 20210709
  Transmission Date: 20211014
  Serious: No
  Sender: FDA-Public Use
  Company Number: US-PFIZER INC-2021535982

PATIENT
  Age: 66 Year
  Sex: Female

DRUGS (3)
  1. INLYTA [Suspect]
     Active Substance: AXITINIB
     Dosage: 5 MG, 2X/DAY
     Dates: start: 20210506
  2. INLYTA [Suspect]
     Active Substance: AXITINIB
     Dosage: 5 MG, 2X/DAY
     Dates: start: 20210505
  3. INLYTA [Suspect]
     Active Substance: AXITINIB
     Dosage: 5 MG
     Dates: start: 20210510

REACTIONS (10)
  - Chills [Unknown]
  - Headache [Unknown]
  - Decreased appetite [Unknown]
  - Peripheral coldness [Unknown]
  - Blood pressure increased [Unknown]
  - Nervousness [Unknown]
  - Abdominal pain upper [Unknown]
  - Productive cough [Unknown]
  - Hypertension [Unknown]
  - Diarrhoea [Unknown]
